FAERS Safety Report 15549782 (Version 2)
Quarter: 2018Q4

REPORT INFORMATION
  Report Type: Report from Study
  Country: CA (occurrence: CA)
  Receive Date: 20181025
  Receipt Date: 20181130
  Transmission Date: 20190205
  Serious: Yes (Hospitalization, Other)
  Sender: FDA-Public Use
  Company Number: PHHY2018CA129746

PATIENT
  Age: 73 Year
  Sex: Female
  Weight: 67.2 kg

DRUGS (9)
  1. PREGABALIN. [Concomitant]
     Active Substance: PREGABALIN
     Indication: PAIN
     Dosage: 150 MG, BID
     Route: 065
  2. HYDROMORPHONE [Concomitant]
     Active Substance: HYDROMORPHONE
     Indication: PAIN
     Dosage: 2-3 MG, PRN
     Route: 048
     Dates: start: 201805
  3. FENTANYL. [Concomitant]
     Active Substance: FENTANYL
     Indication: PAIN
     Dosage: (75-100 MCG) QH
     Route: 065
     Dates: start: 201709
  4. AFINITOR [Suspect]
     Active Substance: EVEROLIMUS
     Indication: BREAST CANCER METASTATIC
     Dosage: 25 MG, UNK
     Route: 048
     Dates: start: 20170707, end: 20180419
  5. HYDROMORPHONE [Suspect]
     Active Substance: HYDROMORPHONE
     Indication: PAIN
     Dosage: 4 MG, BID
     Route: 048
     Dates: start: 201805
  6. ACETAMINOPHEN. [Concomitant]
     Active Substance: ACETAMINOPHEN
     Indication: PRODUCT USED FOR UNKNOWN INDICATION
     Route: 065
  7. EXEMESTANE. [Suspect]
     Active Substance: EXEMESTANE
     Indication: BREAST CANCER METASTATIC
     Dosage: UNK
     Route: 065
  8. ZOLEDRONATE [Concomitant]
     Active Substance: ZOLEDRONIC ACID
     Indication: PRODUCT USED FOR UNKNOWN INDICATION
     Route: 065
  9. DALTEPARIN [Concomitant]
     Active Substance: DALTEPARIN
     Indication: EMBOLISM
     Dosage: 5000 U, QD
     Route: 065
     Dates: start: 201801

REACTIONS (25)
  - Renal impairment [Recovered/Resolved]
  - Hydronephrosis [Recovered/Resolved]
  - Pulmonary embolism [Recovered/Resolved]
  - Acute kidney injury [Recovered/Resolved]
  - Chest pain [Unknown]
  - Oedema peripheral [Recovered/Resolved]
  - Infection [Unknown]
  - Ascites [Unknown]
  - Breast cancer metastatic [Recovered/Resolved]
  - Oedema [Unknown]
  - Urinary tract infection [Recovered/Resolved]
  - Metastases to bone [Recovered/Resolved]
  - Lethargy [Unknown]
  - Pleural effusion [Recovered/Resolved]
  - Oedema peripheral [Unknown]
  - Malignant neoplasm progression [Recovered/Resolved]
  - Delirium [Recovered/Resolved]
  - Dyspnoea [Unknown]
  - Pain [Recovered/Resolved]
  - Compression fracture [Recovered/Resolved]
  - Confusional state [Unknown]
  - Constipation [Recovered/Resolved]
  - Chest discomfort [Unknown]
  - Fatigue [Unknown]
  - Toxicity to various agents [Recovered/Resolved]

NARRATIVE: CASE EVENT DATE: 20180430
